FAERS Safety Report 18309275 (Version 1)
Quarter: 2020Q3

REPORT INFORMATION
  Report Type: Spontaneous
  Country: GB (occurrence: GB)
  Receive Date: 20200924
  Receipt Date: 20200924
  Transmission Date: 20201103
  Serious: No
  Sender: FDA-Public Use
  Company Number: GB-KARYOPHARM-2020KPT000933

PATIENT

DRUGS (1)
  1. XPOVIO [Suspect]
     Active Substance: SELINEXOR
     Indication: DIFFUSE LARGE B-CELL LYMPHOMA
     Dosage: 1 DF, WEEKLY
     Route: 048
     Dates: start: 2015

REACTIONS (2)
  - Fatigue [Unknown]
  - Gastrointestinal disorder [Unknown]
